FAERS Safety Report 18589147 (Version 1)
Quarter: 2020Q4

REPORT INFORMATION
  Report Type: Spontaneous
  Country: US (occurrence: US)
  Receive Date: 20201208
  Receipt Date: 20201208
  Transmission Date: 20210114
  Serious: No
  Sender: FDA-Public Use
  Company Number: US-TEVA-2020-US-1857091

PATIENT
  Age: 21 Year
  Sex: Male

DRUGS (1)
  1. BACLOFEN. [Suspect]
     Active Substance: BACLOFEN
     Indication: MUSCLE SPASTICITY
     Dosage: INCREASED DOSES UP TO 20 MG APPROXIMATELY 4 HOURS APART AS OF 11-SEP-2019
     Route: 048

REACTIONS (2)
  - Fatigue [Unknown]
  - Sedation [Unknown]
